FAERS Safety Report 8615254-5 (Version None)
Quarter: 2012Q3

REPORT INFORMATION
  Report Type: 
  Country: None (occurrence: None)
  Receive Date: 20120823
  Receipt Date: 20120817
  Transmission Date: 20120928
  Serious: No
  Sender: FDA-Public Use
  Company Number: US-PFIZER INC-2012204892

PATIENT
  Age: 44 Year
  Sex: Female

DRUGS (1)
  1. BACITRACIN [Suspect]
     Dosage: UNK

REACTIONS (3)
  - DRUG HYPERSENSITIVITY [None]
  - IMPAIRED HEALING [None]
  - EYE SWELLING [None]
